FAERS Safety Report 10160364 (Version 1)
Quarter: 2014Q2

REPORT INFORMATION
  Report Type: Spontaneous
  Country: NL (occurrence: NL)
  Receive Date: 20140508
  Receipt Date: 20140508
  Transmission Date: 20141212
  Serious: Yes (Hospitalization, Other)
  Sender: FDA-Public Use
  Company Number: NL-GLAXOSMITHKLINE-B0990667A

PATIENT
  Age: 24 Year
  Sex: Female

DRUGS (3)
  1. ACYCLOVIR [Suspect]
     Indication: ENCEPHALITIS
     Dosage: 1500MGD PER DAY
     Route: 042
  2. CEFTRIAXONE [Concomitant]
     Indication: ENCEPHALITIS
     Dosage: 2G TWICE PER DAY
     Route: 042
  3. AMOXICILLIN [Concomitant]
     Indication: ENCEPHALITIS
     Dosage: 12G PER DAY
     Route: 042

REACTIONS (2)
  - Renal failure acute [Recovered/Resolved]
  - Crystal urine present [Unknown]
